FAERS Safety Report 11937069 (Version 13)
Quarter: 2020Q3

REPORT INFORMATION
  Report Type: Spontaneous
  Country: US (occurrence: US)
  Receive Date: 20160121
  Receipt Date: 20200710
  Transmission Date: 20201102
  Serious: Yes (Hospitalization)
  Sender: FDA-Public Use
  Company Number: US-ACTELION PHARMACEUTICALS US, INC.-A-US2015-117750

PATIENT
  Sex: Female
  Weight: 94.79 kg

DRUGS (4)
  1. PREDNISONE. [Concomitant]
     Active Substance: PREDNISONE
  2. AMLODIPINE [Concomitant]
     Active Substance: AMLODIPINE BESYLATE
  3. OPSUMIT [Suspect]
     Active Substance: MACITENTAN
     Indication: PULMONARY HYPERTENSION
     Dosage: 10 MG, QD
     Route: 048
     Dates: start: 20140716
  4. OPSUMIT [Suspect]
     Active Substance: MACITENTAN
     Dosage: 10 MG, QD
     Route: 048

REACTIONS (21)
  - Unevaluable event [Unknown]
  - Ingrowing nail [Unknown]
  - Eructation [Unknown]
  - Dyspnoea [Unknown]
  - Chest pain [Unknown]
  - Musculoskeletal discomfort [Unknown]
  - Infection [Unknown]
  - Eye disorder [Unknown]
  - Oropharyngeal pain [Unknown]
  - Productive cough [Unknown]
  - Chest discomfort [Unknown]
  - Road traffic accident [Unknown]
  - Pain in extremity [Unknown]
  - Cataract operation [Unknown]
  - Oedema peripheral [Unknown]
  - Rotator cuff syndrome [Unknown]
  - Malaise [Recovering/Resolving]
  - Dyspepsia [Unknown]
  - Fatigue [Unknown]
  - Neck pain [Unknown]
  - Cough [Unknown]

NARRATIVE: CASE EVENT DATE: 2019
